FAERS Safety Report 18406995 (Version 5)
Quarter: 2020Q4

REPORT INFORMATION
  Report Type: Report from Study
  Country: US (occurrence: US)
  Receive Date: 20201021
  Receipt Date: 20201106
  Transmission Date: 20210114
  Serious: Yes (Disabling)
  Sender: FDA-Public Use
  Company Number: US-AMGEN INC.-USACT2020167457

PATIENT
  Age: 70 Year
  Sex: Female
  Weight: 53.8 kg

DRUGS (37)
  1. MG PLUS PROTEIN [Concomitant]
     Dosage: 1 UNK
     Route: 048
     Dates: start: 20201001
  2. PROTONIX [Concomitant]
     Active Substance: PANTOPRAZOLE SODIUM
     Dosage: 40 MILLIGRAM
     Route: 048
     Dates: start: 20200116, end: 20200930
  3. NORVASC [Concomitant]
     Active Substance: AMLODIPINE BESYLATE
     Dosage: 5-10 MILLIGRAM
     Route: 048
     Dates: start: 20201012
  4. ELUVIXTAMAB. [Suspect]
     Active Substance: ELUVIXTAMAB
     Indication: ACUTE MYELOID LEUKAEMIA
     Dosage: 220 MICROGRAM
     Route: 042
     Dates: start: 20201002
  5. NOXAFIL [Concomitant]
     Active Substance: POSACONAZOLE
     Dosage: 300 MILLIGRAM
     Route: 048
     Dates: start: 20200305
  6. ZOVIRAX [Concomitant]
     Active Substance: ACYCLOVIR
     Dosage: 400 MILLIGRAM
     Route: 048
     Dates: start: 20190510, end: 20201015
  7. LASIX [Concomitant]
     Active Substance: FUROSEMIDE
     Dosage: 10-40 MILLIGRAM
     Dates: start: 20201005, end: 20201011
  8. LMX4 [Concomitant]
     Active Substance: LIDOCAINE
     Dosage: 1 UNK
     Route: 061
     Dates: start: 20201011
  9. CYTOSAR [Concomitant]
     Active Substance: CYTARABINE
     Dosage: UNK
     Dates: start: 20200409
  10. TYLENOL [Concomitant]
     Active Substance: ACETAMINOPHEN
     Dosage: 650 MILLIGRAM
     Route: 048
     Dates: start: 20201007, end: 20201015
  11. VICODIN [Concomitant]
     Active Substance: ACETAMINOPHEN\HYDROCODONE BITARTRATE
     Dosage: 1 UNK
     Route: 048
     Dates: start: 20201002
  12. DEMEROL [Concomitant]
     Active Substance: MEPERIDINE HYDROCHLORIDE
     Dosage: 25 MILLIGRAM
     Route: 042
     Dates: start: 20201002, end: 20201002
  13. COMPAZINE [Concomitant]
     Active Substance: PROCHLORPERAZINE MALEATE
     Dosage: 10 MILLIGRAM
     Dates: start: 20190829, end: 20201013
  14. KENALOG [Concomitant]
     Active Substance: TRIAMCINOLONE ACETONIDE
     Dosage: 1 UNK
     Route: 061
     Dates: start: 20201005, end: 20201006
  15. SODIUM PHOSPHATES [SODIUM PHOSPHATE] [Concomitant]
     Dosage: 15 UNK
     Route: 042
     Dates: start: 20201006
  16. RED BLOOD CELLS [Concomitant]
     Active Substance: HUMAN RED BLOOD CELL
     Dosage: 1 UNK
     Route: 042
     Dates: start: 20201007, end: 20201008
  17. METHOTREXATE. [Concomitant]
     Active Substance: METHOTREXATE
     Dosage: UNK
     Dates: start: 20200319
  18. VISTARIL [Concomitant]
     Active Substance: HYDROXYZINE PAMOATE
     Dosage: 25 MILLIGRAM
     Route: 048
     Dates: start: 20201006, end: 20201009
  19. LEVAQUIN [Concomitant]
     Active Substance: LEVOFLOXACIN
     Dosage: 750 MILLIGRAM
     Route: 048
     Dates: start: 20200923, end: 20200930
  20. POTASSIUM CHLORIDE. [Concomitant]
     Active Substance: POTASSIUM CHLORIDE
     Dosage: 20-40 MILLIEQUIVALENT
     Route: 042
     Dates: start: 20201008, end: 20201015
  21. BIOTENE [GLUCOSE OXIDASE;LACTOPEROXIDASE] [Concomitant]
     Dosage: 15 MILLILITER
     Route: 050
     Dates: start: 20201001
  22. KYTRIL [Concomitant]
     Active Substance: GRANISETRON HYDROCHLORIDE
     Dosage: 1 MILLIGRAM
     Route: 042
     Dates: start: 20201002, end: 20201014
  23. MICRO-K [Concomitant]
     Active Substance: POTASSIUM CHLORIDE
     Dosage: 30-40 MILLIEQUIVALENT
     Route: 048
     Dates: start: 20201001, end: 20201011
  24. APRESOLINE HYDROCHLORIDE [Concomitant]
     Active Substance: HYDRALAZINE HYDROCHLORIDE
     Dosage: 10 MILLIGRAM
     Route: 048
     Dates: start: 20201012, end: 20201013
  25. CATHFLO ACTIVASE [Concomitant]
     Active Substance: ALTEPLASE
     Dosage: 2 MILLIGRAM
     Route: 050
     Dates: start: 20201007, end: 20201007
  26. FIORICET [Concomitant]
     Active Substance: ACETAMINOPHEN\BUTALBITAL\CAFFEINE
     Dosage: 1 UNK
     Route: 048
     Dates: start: 20201003
  27. ETANERCEPT [Suspect]
     Active Substance: ETANERCEPT
     Indication: CYTOKINE RELEASE SYNDROME
  28. XYLOCAINE [Concomitant]
     Active Substance: LIDOCAINE HYDROCHLORIDE
     Dosage: 200 MILLIGRAM
     Route: 058
     Dates: start: 20200924, end: 20201016
  29. ACTEMRA [Concomitant]
     Active Substance: TOCILIZUMAB
     Dosage: 420 MILLIGRAM
     Route: 042
     Dates: start: 20201002, end: 20201002
  30. ALBUMIN HUMAN [Concomitant]
     Active Substance: ALBUMIN HUMAN
     Dosage: 12.5-25 GRAM
     Route: 042
     Dates: start: 20201006, end: 20201010
  31. ZYLOPRIM [Concomitant]
     Active Substance: ALLOPURINOL
     Dosage: 200 MILLIGRAM
     Route: 048
     Dates: start: 20201002
  32. TRICOR [Concomitant]
     Active Substance: FENOFIBRATE
     Dosage: 145 MILLIGRAM
     Route: 048
     Dates: start: 20201001
  33. ETANERCEPT [Suspect]
     Active Substance: ETANERCEPT
     Indication: ACUTE MYELOID LEUKAEMIA
     Dosage: 50 MILLIGRAM
     Route: 058
     Dates: start: 20201001
  34. SODIUM CHLORIDE. [Concomitant]
     Active Substance: SODIUM CHLORIDE
     Dosage: 50 UNK
     Route: 042
     Dates: start: 20201001
  35. BACTRIM DS [Concomitant]
     Active Substance: SULFAMETHOXAZOLE\TRIMETHOPRIM
     Dosage: 1 UNK
     Route: 048
     Dates: start: 20191228
  36. MAXIPIME [Concomitant]
     Active Substance: CEFEPIME HYDROCHLORIDE
     Dosage: 2000 MILLIGRAM
     Route: 042
     Dates: start: 20201002
  37. CRYOPRECIPITATE [Concomitant]
     Active Substance: CRYOPRECIPITATED ANTIHEMOPHILIC FACTOR (HUMAN)
     Dosage: 10 UNK
     Route: 042
     Dates: start: 20201008, end: 20201010

REACTIONS (2)
  - Optic neuropathy [Not Recovered/Not Resolved]
  - Optic neuritis [Not Recovered/Not Resolved]

NARRATIVE: CASE EVENT DATE: 20201013
